FAERS Safety Report 6418148-9 (Version None)
Quarter: 2009Q4

REPORT INFORMATION
  Report Type: 
  Country: None (occurrence: None)
  Receive Date: 20091028
  Receipt Date: 20091016
  Transmission Date: 20100525
  Serious: Yes (Other)
  Sender: FDA-Public Use
  Company Number: FR-ELI_LILLY_AND_COMPANY-FR200910004287

PATIENT
  Age: 67 Year
  Sex: Female

DRUGS (4)
  1. FORTEO [Suspect]
     Indication: OSTEOPOROSIS
     Dosage: 20 UG, DAILY (1/D)
     Route: 065
     Dates: start: 20091004, end: 20091006
  2. CORDARONE [Concomitant]
     Dosage: UNK, UNKNOWN
     Route: 065
  3. PREVISCAN [Concomitant]
     Dosage: UNK, UNKNOWN
     Route: 065
  4. BETA BLOCKING AGENTS [Concomitant]
     Dosage: UNK, UNKNOWN
     Route: 065

REACTIONS (2)
  - ARRHYTHMIA [None]
  - INTERNATIONAL NORMALISED RATIO DECREASED [None]
